FAERS Safety Report 5688050-9 (Version None)
Quarter: 2008Q1

REPORT INFORMATION
  Report Type: 
  Country: None (occurrence: None)
  Receive Date: 20080327
  Receipt Date: 20080311
  Transmission Date: 20080703
  Serious: No
  Sender: FDA-Public Use
  Company Number: 2008-GWUS-0093

PATIENT
  Age: 55 Year
  Sex: Male

DRUGS (12)
  1. ALDARA [Suspect]
     Indication: SKIN PAPILLOMA
     Dosage: APPLICATION - 3X2 - TOPICAL
     Route: 061
     Dates: start: 20070820, end: 20071116
  2. ALDARA [Concomitant]
     Indication: SKIN PAPILLOMA
  3. SQUARIC ACID [Concomitant]
     Indication: SKIN PAPILLOMA
     Dosage: 0.5% - TOPICAL
     Route: 061
  4. OXICONAZOLE (OXISTAT) 1% CREAM. CREAM APPLICATION [Concomitant]
  5. RETAPAMULIN (ALTABAX) 1% OINTMENT - OINTMENT APPLICATION [Concomitant]
  6. DIFLUCAN [Concomitant]
  7. KEROL 50% SUSPENSION - CREAM APPLICATION [Concomitant]
  8. CLOBETASOL PROPIONATE (CLOBEX LOTION 0.05%) - LOTION APPLICATION [Concomitant]
  9. SQUARIC ACID - 0.5% - TOPICAL [Concomitant]
  10. SQUARIC ACID  0.05% - TOPICAL [Concomitant]
  11. ZOCOR [Concomitant]
  12. LEVAQUIN [Concomitant]

REACTIONS (9)
  - COMPLEX REGIONAL PAIN SYNDROME [None]
  - CONDITION AGGRAVATED [None]
  - DERMATITIS [None]
  - EXCORIATION [None]
  - IDIOSYNCRATIC DRUG REACTION [None]
  - NEUROPATHY PERIPHERAL [None]
  - PARAESTHESIA [None]
  - PARONYCHIA [None]
  - PRURITUS [None]
